FAERS Safety Report 25395960 (Version 1)
Quarter: 2025Q2

REPORT INFORMATION
  Report Type: Spontaneous
  Country: US (occurrence: None)
  Receive Date: 20250603
  Receipt Date: 20250603
  Transmission Date: 20250717
  Serious: Yes (Life-Threatening, Disabling)
  Sender: FDA-CTU
  Company Number: None

PATIENT
  Age: 39 Year
  Sex: Female
  Weight: 54 kg

DRUGS (6)
  1. EFFEXOR [Suspect]
     Active Substance: VENLAFAXINE HYDROCHLORIDE
     Indication: Product complaint
  2. PAXIL [Suspect]
     Active Substance: PAROXETINE HYDROCHLORIDE
  3. PROZAC [Suspect]
     Active Substance: FLUOXETINE HYDROCHLORIDE
  4. ZOLOFT [Suspect]
     Active Substance: SERTRALINE HYDROCHLORIDE
  5. CYMBALTA [Suspect]
     Active Substance: DULOXETINE HYDROCHLORIDE
  6. MIRTAZAPINE [Suspect]
     Active Substance: MIRTAZAPINE

REACTIONS (5)
  - Therapy cessation [None]
  - Withdrawal syndrome [None]
  - Suicidal ideation [None]
  - Drug titration [None]
  - Drug dose titration not performed [None]

NARRATIVE: CASE EVENT DATE: 20160401
